FAERS Safety Report 6676422-5 (Version None)
Quarter: 2010Q2

REPORT INFORMATION
  Report Type: 
  Country: None (occurrence: None)
  Receive Date: 20100412
  Receipt Date: 20100331
  Transmission Date: 20101027
  Serious: Yes (Other)
  Sender: FDA-Public Use
  Company Number: PHHY2010BR19769

PATIENT
  Age: 79 Year
  Sex: Female

DRUGS (2)
  1. DIOVAN AMLO [Suspect]
     Dosage: 160/5 MG
  2. STALEVO 100 [Suspect]
     Dosage: 200/100/25 MG

REACTIONS (5)
  - ABASIA [None]
  - BEDRIDDEN [None]
  - CEREBROVASCULAR ACCIDENT [None]
  - FACIAL PALSY [None]
  - TREATMENT NONCOMPLIANCE [None]
